FAERS Safety Report 10524622 (Version 1)
Quarter: 2014Q4

REPORT INFORMATION
  Report Type: Spontaneous
  Country: US (occurrence: None)
  Receive Date: 20141015
  Receipt Date: 20141015
  Transmission Date: 20150528
  Serious: Yes (Other)
  Sender: FDA-Public Use
  Company Number: None

PATIENT
  Age: 50 Year
  Sex: Female

DRUGS (4)
  1. CAPECITABINE. [Concomitant]
     Active Substance: CAPECITABINE
  2. METHIMAZOLE. [Concomitant]
     Active Substance: METHIMAZOLE
  3. TEMOZOLOMIDE. [Suspect]
     Active Substance: TEMOZOLOMIDE
     Indication: BRAIN NEOPLASM MALIGNANT
     Dosage: 2X DAILY ON DAYS 10-14
     Route: 048
     Dates: start: 20140911, end: 20141008
  4. COMBIGAN SOL [Concomitant]

REACTIONS (5)
  - Hypersensitivity [None]
  - Eye swelling [None]
  - Vomiting [None]
  - Swelling face [None]
  - Pharyngeal oedema [None]

NARRATIVE: CASE EVENT DATE: 20141008
